FAERS Safety Report 7575264-6 (Version None)
Quarter: 2011Q2

REPORT INFORMATION
  Report Type: 
  Country: None (occurrence: None)
  Receive Date: 20110627
  Receipt Date: 20110616
  Transmission Date: 20111010
  Serious: Yes (Hospitalization)
  Sender: FDA-Public Use
  Company Number: US-BAYER-2011-052119

PATIENT
  Age: 38 Year
  Sex: Female

DRUGS (1)
  1. NEXAVAR [Suspect]
     Indication: SARCOMA
     Dosage: 400 MG, BID
     Dates: start: 20110606

REACTIONS (4)
  - FATIGUE [None]
  - DECREASED APPETITE [None]
  - PYREXIA [None]
  - PLEURAL EFFUSION [None]
